FAERS Safety Report 14330292 (Version 2)
Quarter: 2018Q1

REPORT INFORMATION
  Report Type: Report from Study
  Country: US (occurrence: US)
  Receive Date: 20171227
  Receipt Date: 20180315
  Transmission Date: 20180509
  Serious: Yes (Hospitalization, Other)
  Sender: FDA-Public Use
  Company Number: US-TAKEDA-2017MPI010946

PATIENT
  Sex: Female
  Weight: 49.89 kg

DRUGS (4)
  1. DEXAMETHASONE. [Suspect]
     Active Substance: DEXAMETHASONE
     Indication: PLASMA CELL MYELOMA
     Dosage: UNK
     Route: 065
     Dates: end: 20171130
  2. ASPIRIN                            /00002701/ [Concomitant]
     Active Substance: ASPIRIN
     Dosage: UNK
     Route: 065
     Dates: end: 20171130
  3. IXAZOMIB [Suspect]
     Active Substance: IXAZOMIB
     Indication: PLASMA CELL MYELOMA
     Dosage: 4 MG, UNK
     Route: 048
     Dates: start: 20171111, end: 201712
  4. REVLIMID [Suspect]
     Active Substance: LENALIDOMIDE
     Indication: PLASMA CELL MYELOMA
     Dosage: UNK
     Route: 065
     Dates: end: 20171130

REACTIONS (8)
  - Aplastic anaemia [Unknown]
  - Peripheral swelling [Unknown]
  - Nausea [Unknown]
  - Asthenia [Unknown]
  - Diarrhoea [Unknown]
  - Contusion [Unknown]
  - Pancytopenia [Unknown]
  - Adverse drug reaction [Unknown]
